FAERS Safety Report 10853941 (Version 1)
Quarter: 2015Q1

REPORT INFORMATION
  Report Type: Spontaneous
  Country: CA (occurrence: None)
  Receive Date: 20150218
  Receipt Date: 20150218
  Transmission Date: 20150721
  Serious: Yes (Hospitalization, Other)
  Sender: FDA-Public Use
  Company Number: 2738568

PATIENT
  Age: 60 Year
  Sex: Female

DRUGS (3)
  1. PREDNISONE. [Concomitant]
     Active Substance: PREDNISONE
  2. HYDROMORPHONE HYDROCHLORIDE. [Suspect]
     Active Substance: HYDROMORPHONE HYDROCHLORIDE
     Indication: PAIN
  3. ENBREL [Suspect]
     Active Substance: ETANERCEPT
     Indication: RHEUMATOID ARTHRITIS

REACTIONS (11)
  - Gait disturbance [None]
  - Limb discomfort [None]
  - Insomnia [None]
  - Road traffic accident [None]
  - Therapeutic response decreased [None]
  - Inflammatory marker increased [None]
  - Spinal fusion surgery [None]
  - Spinal laminectomy [None]
  - Joint swelling [None]
  - Neck surgery [None]
  - Sciatica [None]
